FAERS Safety Report 23027114 (Version 1)
Quarter: 2023Q4

REPORT INFORMATION
  Report Type: Spontaneous
  Country: CA (occurrence: CA)
  Receive Date: 20231004
  Receipt Date: 20231004
  Transmission Date: 20240110
  Serious: Yes (Hospitalization)
  Sender: FDA-Public Use
  Company Number: CA-SANDOZ-SDZ2023CA034475

PATIENT
  Age: 64 Year
  Sex: Male

DRUGS (16)
  1. AMOXICILLIN\CLAVULANATE POTASSIUM [Suspect]
     Active Substance: AMOXICILLIN\CLAVULANATE POTASSIUM
     Indication: Cholecystitis acute
     Dosage: UNK
     Route: 048
  2. DEPEMOKIMAB [Suspect]
     Active Substance: DEPEMOKIMAB
     Indication: Asthma
     Dosage: UNK
     Route: 065
  3. DEPEMOKIMAB [Suspect]
     Active Substance: DEPEMOKIMAB
     Indication: Asthma
     Dosage: UNK
     Route: 065
  4. HYDROMORPHONE [Suspect]
     Active Substance: HYDROMORPHONE
     Indication: Cholecystitis acute
     Dosage: 1 MG
     Route: 048
  5. ALBUTEROL SULFATE [Suspect]
     Active Substance: ALBUTEROL SULFATE
     Indication: Asthma
     Dosage: UNK
     Route: 065
  6. ADVAIR HFA [Concomitant]
     Active Substance: FLUTICASONE PROPIONATE\SALMETEROL XINAFOATE
     Indication: Asthma
     Dosage: UNK, 2 EVERY 1 DAYS
     Route: 055
  7. ASPIRIN [Concomitant]
     Active Substance: ASPIRIN
     Indication: Asthma
     Dosage: 81 MG,1 EVERY 1 DAYS
     Route: 048
  8. AZELASTINE HYDROCHLORIDE AND FLUTICASONE PROPIONATE [Concomitant]
     Active Substance: AZELASTINE HYDROCHLORIDE\FLUTICASONE PROPIONATE
     Indication: Rhinitis allergic
     Dosage: UNK, 2 EVERY 1 DAYS
     Route: 055
  9. BRILINTA [Concomitant]
     Active Substance: TICAGRELOR
     Indication: Myocardial infarction
     Dosage: 90 MG, 2 EVERY 1 DAYS
     Route: 048
  10. METHYLPREDNISOLONE SODIUM SUCCINATE [Concomitant]
     Active Substance: METHYLPREDNISOLONE SODIUM SUCCINATE
     Indication: Asthma
     Dosage: 125 MG, M 1 EVERY 1 DAYS
     Route: 042
  11. METOPROLOL L [Concomitant]
     Indication: Hypertension
     Dosage: 25 MG, 1 EVERY 1 DAYS
     Route: 048
  12. MONTELUKAST [Concomitant]
     Active Substance: MONTELUKAST SODIUM
     Indication: Asthma
     Dosage: 10 MG,1 EVERY 1 DAYS
     Route: 048
  13. PERINDOPRIL [Concomitant]
     Active Substance: PERINDOPRIL
     Indication: Hypertension
     Dosage: 2 MG,1 EVERY 1 DAYS
     Route: 048
  14. ROSUVASTATIN [Concomitant]
     Active Substance: ROSUVASTATIN
     Indication: Blood cholesterol increased
     Dosage: 40 MG,1 EVERY 1 DAYS
     Route: 048
  15. THEOPHYLLINE [Concomitant]
     Active Substance: THEOPHYLLINE
     Indication: Asthma
     Dosage: 200 MG, 1 EVERY 1 DAYS
     Route: 048
  16. ACLIDINIUM BROMIDE [Concomitant]
     Active Substance: ACLIDINIUM BROMIDE
     Indication: Asthma
     Dosage: 400 MG, 2 EVERY 1 DAYS
     Route: 055

REACTIONS (1)
  - Chest pain [Recovered/Resolved]
